FAERS Safety Report 12226363 (Version 1)
Quarter: 2016Q1

REPORT INFORMATION
  Report Type: Report from Study
  Country: US (occurrence: US)
  Receive Date: 20160331
  Receipt Date: 20160331
  Transmission Date: 20160526
  Serious: Yes (Hospitalization)
  Sender: FDA-Public Use
  Company Number: US-JNJFOC-20160302462

PATIENT
  Age: 68 Year
  Sex: Female
  Weight: 62 kg

DRUGS (9)
  1. PROTONIX [Concomitant]
     Active Substance: PANTOPRAZOLE SODIUM
  2. XARELTO [Concomitant]
     Active Substance: RIVAROXABAN
  3. IMBRUVICA [Suspect]
     Active Substance: IBRUTINIB
     Indication: NON-HODGKIN^S LYMPHOMA
     Route: 048
     Dates: start: 201407, end: 201602
  4. NEURONTIN [Concomitant]
     Active Substance: GABAPENTIN
  5. FUROSEMIDE. [Concomitant]
     Active Substance: FUROSEMIDE
  6. IMBRUVICA [Suspect]
     Active Substance: IBRUTINIB
     Indication: LYMPHOMA
     Route: 048
     Dates: start: 201407, end: 201602
  7. ATENOLOL. [Concomitant]
     Active Substance: ATENOLOL
  8. SYNTHROID [Concomitant]
     Active Substance: LEVOTHYROXINE SODIUM
  9. LORAZEPAM. [Concomitant]
     Active Substance: LORAZEPAM

REACTIONS (12)
  - Malnutrition [Unknown]
  - Balance disorder [Unknown]
  - Disease progression [Unknown]
  - Back pain [Recovering/Resolving]
  - Respiratory failure [Recovered/Resolved]
  - Fall [Unknown]
  - Hypoxia [Recovering/Resolving]
  - Off label use [Unknown]
  - Pneumonia [Recovering/Resolving]
  - Pleural effusion [Unknown]
  - Oedema peripheral [Recovering/Resolving]
  - Pancytopenia [Recovering/Resolving]

NARRATIVE: CASE EVENT DATE: 201602
